FAERS Safety Report 13206310 (Version 1)
Quarter: 2017Q1

REPORT INFORMATION
  Report Type: Spontaneous
  Country: US (occurrence: US)
  Receive Date: 20170208
  Receipt Date: 20170208
  Transmission Date: 20170428
  Serious: Yes (Disabling)
  Sender: FDA-Public Use
  Company Number: None

PATIENT
  Age: 51 Year
  Sex: Male
  Weight: 99 kg

DRUGS (1)
  1. OXYBUTYNIN CL ER [Suspect]
     Active Substance: OXYBUTYNIN CHLORIDE
     Indication: HYPERTONIC BLADDER
     Dosage: ?          QUANTITY:24 TABLET(S);?
     Route: 048
     Dates: start: 20170121, end: 20170131

REACTIONS (3)
  - Drug ineffective [None]
  - Product substitution issue [None]
  - Poor quality drug administered [None]

NARRATIVE: CASE EVENT DATE: 20170123
